FAERS Safety Report 8385265-6 (Version None)
Quarter: 2012Q2

REPORT INFORMATION
  Report Type: 
  Country: None (occurrence: None)
  Receive Date: 20120525
  Receipt Date: 20120514
  Transmission Date: 20120825
  Serious: No
  Sender: FDA-Public Use
  Company Number: US-BIOGENIDEC-2012BI017050

PATIENT
  Age: 31 Year
  Sex: Female

DRUGS (5)
  1. CYMBALTA [Concomitant]
     Indication: AGORAPHOBIA
     Dates: start: 20070101
  2. TYSABRI [Suspect]
     Indication: MULTIPLE SCLEROSIS
     Route: 042
     Dates: end: 20070629
  3. CYMBALTA [Concomitant]
     Indication: PAIN
     Dates: start: 20070101
  4. TYSABRI [Suspect]
     Route: 042
     Dates: start: 20070914
  5. CYMBALTA [Concomitant]
     Indication: DEPRESSION
     Dates: start: 20070101

REACTIONS (2)
  - FATIGUE [None]
  - LIMB INJURY [None]
